FAERS Safety Report 24291704 (Version 1)
Quarter: 2024Q3

REPORT INFORMATION
  Report Type: Spontaneous
  Country: US (occurrence: None)
  Receive Date: 20240906
  Receipt Date: 20240906
  Transmission Date: 20241016
  Serious: No
  Sender: Public
  Company Number: None

PATIENT
  Age: 46 Year
  Sex: Male
  Weight: 183 kg

DRUGS (1)
  1. CABOTEGRAVIR [Suspect]
     Active Substance: CABOTEGRAVIR
     Indication: Prophylaxis against HIV infection
     Dosage: OTHER FREQUENCY : EVERY60DAYS;?
     Route: 030
     Dates: start: 20240726

REACTIONS (4)
  - Injection site reaction [None]
  - Neuralgia [None]
  - Nerve injury [None]
  - Trendelenburg^s symptom [None]

NARRATIVE: CASE EVENT DATE: 20240803
